FAERS Safety Report 7279801-0 (Version None)
Quarter: 2011Q1

REPORT INFORMATION
  Report Type: 
  Country: None (occurrence: None)
  Receive Date: 20110203
  Receipt Date: 20110203
  Transmission Date: 20110831
  Serious: No
  Sender: FDA-Public Use
  Company Number: None

PATIENT
  Sex: Female

DRUGS (1)
  1. RAMIPRIL [Suspect]
     Indication: HYPERTENSION
     Dosage: TAKE 1 CAPSULE AT BEDTIME

REACTIONS (2)
  - DRUG LEVEL BELOW THERAPEUTIC [None]
  - PRODUCT FORMULATION ISSUE [None]
